FAERS Safety Report 9098355 (Version 1)
Quarter: 2013Q1

REPORT INFORMATION
  Report Type: Spontaneous
  Country: US (occurrence: US)
  Receive Date: 20130213
  Receipt Date: 20130213
  Transmission Date: 20140127
  Serious: Yes (Hospitalization)
  Sender: FDA-Public Use
  Company Number: CHPA2013US002604

PATIENT
  Age: 4 Year
  Sex: Male

DRUGS (1)
  1. TRIAMINIC [Suspect]
     Indication: COUGH
     Dosage: UNK, UNK
     Route: 048

REACTIONS (1)
  - Convulsion [Not Recovered/Not Resolved]
